FAERS Safety Report 11355325 (Version 3)
Quarter: 2015Q4

REPORT INFORMATION
  Report Type: Report from Study
  Country: US (occurrence: US)
  Receive Date: 20150807
  Receipt Date: 20151014
  Transmission Date: 20160304
  Serious: Yes (Hospitalization, Other)
  Sender: FDA-Public Use
  Company Number: US-GILEAD-2015-0166642

PATIENT
  Age: 77 Year
  Sex: Female

DRUGS (2)
  1. AMBRISENTAN [Suspect]
     Active Substance: AMBRISENTAN
     Indication: PULMONARY ARTERIAL HYPERTENSION
  2. AMBRISENTAN [Suspect]
     Active Substance: AMBRISENTAN
     Indication: PULMONARY ARTERIAL HYPERTENSION
     Dosage: 5 MG, QD
     Route: 065
     Dates: start: 20130227, end: 20150720

REACTIONS (8)
  - Cardiac failure [Unknown]
  - Hepatic failure [Unknown]
  - Gastric infection [Unknown]
  - Fluid retention [Unknown]
  - Oedema [Unknown]
  - Pleural effusion [Unknown]
  - Oedema peripheral [Unknown]
  - Ascites [Unknown]

NARRATIVE: CASE EVENT DATE: 2015
